FAERS Safety Report 11719109 (Version 3)
Quarter: 2015Q4

REPORT INFORMATION
  Report Type: Spontaneous
  Country: US (occurrence: US)
  Receive Date: 20151027
  Receipt Date: 20151120
  Transmission Date: 20160304
  Serious: Yes (Hospitalization)
  Sender: FDA-Public Use
  Company Number: US-ELI_LILLY_AND_COMPANY-US201108005163

PATIENT
  Age: 86 Year
  Sex: Female

DRUGS (5)
  1. FORTEO [Suspect]
     Active Substance: TERIPARATIDE
     Indication: OSTEOPOROSIS
     Dosage: 20 UG, QD
     Dates: start: 20110530
  2. FORTEO [Suspect]
     Active Substance: TERIPARATIDE
     Dosage: 20 UG, QD
  3. FOSAMAX [Concomitant]
     Active Substance: ALENDRONATE SODIUM
  4. FORTEO [Suspect]
     Active Substance: TERIPARATIDE
     Dosage: 20 UG, QD
  5. FORTEO [Suspect]
     Active Substance: TERIPARATIDE
     Dosage: 20 UG, QD
     Route: 065

REACTIONS (14)
  - Fall [Recovered/Resolved]
  - Tooth injury [Unknown]
  - Speech disorder [Unknown]
  - Contusion [Unknown]
  - Tooth loss [Unknown]
  - Hypertension [Unknown]
  - Facial pain [Unknown]
  - Oral pain [Unknown]
  - Alopecia [Not Recovered/Not Resolved]
  - Cough [Unknown]
  - Blood pressure increased [Unknown]
  - Tooth fracture [Unknown]
  - Urinary tract infection [Unknown]
  - Injection site pain [Unknown]

NARRATIVE: CASE EVENT DATE: 20130415
